FAERS Safety Report 7033874-9 (Version None)
Quarter: 2010Q4

REPORT INFORMATION
  Report Type: 
  Country: None (occurrence: None)
  Receive Date: 20101007
  Receipt Date: 20101001
  Transmission Date: 20110411
  Serious: Yes (Other)
  Sender: FDA-Public Use
  Company Number: US-AMGEN-KDL443320

PATIENT
  Sex: Male
  Weight: 109 kg

DRUGS (8)
  1. PROCRIT [Suspect]
     Indication: ANAEMIA
     Route: 058
     Dates: start: 20100701
  2. INSULIN [Concomitant]
     Route: 058
  3. ATENOLOL [Concomitant]
     Route: 048
  4. LISINOPRIL [Concomitant]
     Route: 048
  5. NIFEDIPINE [Concomitant]
     Route: 048
  6. METFORMIN [Concomitant]
     Route: 048
  7. GEMFIBROZIL [Concomitant]
     Route: 048
  8. ASPIRIN [Concomitant]
     Route: 048

REACTIONS (4)
  - HEADACHE [None]
  - MULTIPLE MYELOMA [None]
  - NAUSEA [None]
  - RENAL DISORDER [None]
